FAERS Safety Report 14545824 (Version 1)
Quarter: 2018Q1

REPORT INFORMATION
  Report Type: Spontaneous
  Country: US (occurrence: US)
  Receive Date: 20180219
  Receipt Date: 20180219
  Transmission Date: 20180509
  Serious: Yes (Death, Other)
  Sender: FDA-Public Use
  Company Number: US-JNJFOC-20180206847

PATIENT

DRUGS (2)
  1. IMODIUM A-D [Suspect]
     Active Substance: LOPERAMIDE HYDROCHLORIDE
     Indication: EUPHORIC MOOD
     Route: 065
  2. IMODIUM A-D [Suspect]
     Active Substance: LOPERAMIDE HYDROCHLORIDE
     Indication: WITHDRAWAL SYNDROME
     Route: 065

REACTIONS (2)
  - Drug abuse [Unknown]
  - Overdose [Fatal]

NARRATIVE: CASE EVENT DATE: 20180205
